FAERS Safety Report 17978361 (Version 2)
Quarter: 2020Q3

REPORT INFORMATION
  Report Type: Spontaneous
  Country: US (occurrence: US)
  Receive Date: 20200703
  Receipt Date: 20200821
  Transmission Date: 20201103
  Serious: No
  Sender: FDA-Public Use
  Company Number: US-GLAXOSMITHKLINE-US2020AMR112950

PATIENT
  Sex: Female

DRUGS (2)
  1. ZOFRAN [Suspect]
     Active Substance: ONDANSETRON HYDROCHLORIDE
     Indication: NAUSEA
     Dosage: UNK
  2. ZEJULA [Suspect]
     Active Substance: NIRAPARIB
     Indication: OVARIAN CANCER
     Dosage: 200 MG, QD
     Dates: start: 20200613

REACTIONS (9)
  - Nausea [Unknown]
  - Full blood count decreased [Unknown]
  - Neoplasm progression [Unknown]
  - Platelet count decreased [Unknown]
  - Tumour marker increased [Unknown]
  - Fatigue [Unknown]
  - Dehydration [Unknown]
  - Headache [Unknown]
  - Scan abnormal [Unknown]
